FAERS Safety Report 8554160-1 (Version None)
Quarter: 2012Q3

REPORT INFORMATION
  Report Type: 
  Country: None (occurrence: None)
  Receive Date: 20120731
  Receipt Date: 20120727
  Transmission Date: 20120928
  Serious: Yes (Life-Threatening, Hospitalization, Disabling)
  Sender: FDA-Public Use
  Company Number: PHHY2012CA064959

PATIENT
  Age: 58 Year
  Sex: Male

DRUGS (3)
  1. OLMESARTAN MEDOXOMIL AND HYDROCHLOROTHIZIDE [Concomitant]
  2. RASILEZ [Suspect]
     Dosage: 1 DF, DAILY
     Route: 048
  3. FIRMAGON [Concomitant]

REACTIONS (1)
  - CEREBRAL INFARCTION [None]
